FAERS Safety Report 6945191-3 (Version None)
Quarter: 2010Q3

REPORT INFORMATION
  Report Type: 
  Country: None (occurrence: None)
  Receive Date: 20100827
  Receipt Date: 20100526
  Transmission Date: 20110219
  Serious: No
  Sender: FDA-Public Use
  Company Number: US-KINGPHARMUSA00001-K201000659

PATIENT
  Age: 59 Year
  Sex: Male

DRUGS (2)
  1. FLECTOR [Suspect]
     Indication: BACK PAIN
     Dosage: UNK PATCH, UNK
     Route: 061
  2. MORPHINE SULFATE [Concomitant]
     Indication: BACK PAIN
     Dosage: UNK

REACTIONS (1)
  - DRUG INEFFECTIVE [None]
